FAERS Safety Report 6827635-0 (Version None)
Quarter: 2010Q3

REPORT INFORMATION
  Report Type: 
  Country: None (occurrence: None)
  Receive Date: 20100709
  Receipt Date: 20070122
  Transmission Date: 20110219
  Serious: No
  Sender: FDA-Public Use
  Company Number: US-PFIZER INC-2007006687

PATIENT
  Sex: Female

DRUGS (5)
  1. CHANTIX [Suspect]
     Indication: EX-TOBACCO USER
     Dates: start: 20070101
  2. RISPERDAL [Concomitant]
  3. REMERON [Concomitant]
  4. LIPITOR [Concomitant]
  5. TRAMADOL HCL [Concomitant]

REACTIONS (4)
  - ABDOMINAL DISCOMFORT [None]
  - NAUSEA [None]
  - RETCHING [None]
  - VOMITING [None]
